FAERS Safety Report 15583012 (Version 1)
Quarter: 2018Q4

REPORT INFORMATION
  Report Type: Spontaneous
  Country: US (occurrence: US)
  Receive Date: 20181105
  Receipt Date: 20181105
  Transmission Date: 20190205
  Serious: Yes (Other)
  Sender: FDA-Public Use
  Company Number: None

PATIENT
  Age: 54 Year
  Sex: Female
  Weight: 81 kg

DRUGS (6)
  1. DIVALPROEX [Concomitant]
     Active Substance: DIVALPROEX SODIUM
  2. TOPIRAMATE. [Concomitant]
     Active Substance: TOPIRAMATE
  3. VITAMIN C [Concomitant]
     Active Substance: ASCORBIC ACID
  4. LEVOTHROXINE [Concomitant]
     Active Substance: LEVOTHYROXINE
  5. REPATHA [Suspect]
     Active Substance: EVOLOCUMAB
     Indication: TYPE IIA HYPERLIPIDAEMIA
     Dosage: ?          QUANTITY:1 INJECTION(S);OTHER FREQUENCY:BI-MONTHLY;?
     Route: 058
     Dates: start: 20180908, end: 20181103
  6. VITAMIN B12 [Concomitant]
     Active Substance: CYANOCOBALAMIN

REACTIONS (3)
  - Swelling face [None]
  - Erythema [None]
  - Rash [None]

NARRATIVE: CASE EVENT DATE: 20180923
